FAERS Safety Report 9161221 (Version 2)
Quarter: 2013Q3

REPORT INFORMATION
  Report Type: Report from Study
  Country: JP (occurrence: JP)
  Receive Date: 20130313
  Receipt Date: 20130708
  Transmission Date: 20140515
  Serious: Yes (Other)
  Sender: FDA-Public Use
  Company Number: JP-009507513-1303JPN004139

PATIENT
  Age: 56 Year
  Sex: Female
  Weight: 87 kg

DRUGS (19)
  1. PEGINTRON [Suspect]
     Indication: CHRONIC HEPATITIS C
     Dosage: 1.5 MICROGRAM PER KILOGRAM, QW
     Route: 058
     Dates: start: 20120912, end: 20120926
  2. PEGINTRON [Suspect]
     Dosage: 1.4 MICROGRAM PER KILOGRAM, QW
     Route: 058
     Dates: start: 20121003, end: 20121030
  3. PEGINTRON [Suspect]
     Dosage: 0.73 MICROGRAM PER KILOGRAM, QW
     Route: 058
     Dates: start: 20121031, end: 20121120
  4. PEGINTRON [Suspect]
     Dosage: 0.73 MICROGRAM PER KILOGRAM, QW
     Route: 058
     Dates: start: 20121128, end: 20130213
  5. REBETOL [Suspect]
     Indication: CHRONIC HEPATITIS C
     Dosage: 1000 MG, QD
     Route: 048
     Dates: start: 20120912, end: 20120924
  6. REBETOL [Suspect]
     Dosage: 600 MG, QD
     Route: 048
     Dates: start: 20120925, end: 20121002
  7. REBETOL [Suspect]
     Dosage: 200 MG, QD
     Route: 048
     Dates: start: 20121003, end: 20121016
  8. REBETOL [Suspect]
     Dosage: 200 MG/ ON ALTERNATE DAYS, DAILY DOSE UNKNOWN
     Route: 048
     Dates: start: 20121017, end: 20121030
  9. REBETOL [Suspect]
     Dosage: 200 MG/ ON ALTERNATE DAYS, DAILY DOSE UNKNOWN
     Route: 048
     Dates: start: 20121107, end: 20121120
  10. REBETOL [Suspect]
     Dosage: 200 MG/ ON ALTERNATE DAYS, DAILY DOSE UNKNOWN
     Route: 048
     Dates: start: 20121128, end: 20130122
  11. REBETOL [Suspect]
     Dosage: 200 MG, QD
     Route: 048
     Dates: start: 20130123, end: 20130219
  12. REBETOL [Suspect]
     Dosage: UNK
  13. TELAVIC [Suspect]
     Indication: CHRONIC HEPATITIS C
     Dosage: 1500 MG, QD
     Route: 048
     Dates: start: 20120912, end: 20121120
  14. VOLTAREN [Suspect]
     Indication: BIOPSY LYMPH GLAND
     Dosage: 75 MG, QD (FORMULATION: POR)
     Route: 048
     Dates: start: 20130212, end: 20130216
  15. MEIACT [Suspect]
     Indication: BIOPSY LYMPH GLAND
     Dosage: 300 MG, QD (FORMULATION: POR)
     Route: 048
     Dates: start: 20130212, end: 20130216
  16. URSO [Concomitant]
     Indication: CHRONIC HEPATITIS C
     Dosage: 600 MG, QD (FORMULATION: POR)
     Route: 048
  17. ETIZOLAM [Concomitant]
     Indication: ANXIETY DISORDER
     Dosage: 1 MG, QD, FORMULATION: POR
     Route: 048
  18. NEXIUM [Concomitant]
     Indication: GASTROOESOPHAGEAL REFLUX DISEASE
     Dosage: 20 MG, QD (FORMULATION: POR)
     Route: 048
     Dates: start: 20121003
  19. SELBEX [Concomitant]
     Indication: GASTRITIS
     Dosage: 150 MG, QD, FORMULATION: POR
     Route: 048
     Dates: start: 20121003

REACTIONS (1)
  - Platelet count decreased [Recovered/Resolved]
